FAERS Safety Report 4977940-8 (Version None)
Quarter: 2006Q2

REPORT INFORMATION
  Report Type: 
  Country: None (occurrence: None)
  Receive Date: 20060420
  Receipt Date: 20060407
  Transmission Date: 20061013
  Serious: Yes (Death, Hospitalization, Other)
  Sender: FDA-Public Use
  Company Number: US-MERCK-0604USA01922

PATIENT
  Age: 86 Year
  Sex: Male
  Weight: 56 kg

DRUGS (20)
  1. VIOXX [Suspect]
     Indication: ARTHRALGIA
     Route: 048
     Dates: start: 20031126, end: 20040830
  2. VIOXX [Suspect]
     Indication: PAIN IN EXTREMITY
     Route: 048
     Dates: start: 20031126, end: 20040830
  3. ATENOLOL [Concomitant]
     Route: 065
  4. HALOPERIDOL [Concomitant]
     Route: 065
  5. LANOXIN [Concomitant]
     Route: 065
  6. WARFARIN [Concomitant]
     Route: 065
  7. ZOLOFT [Concomitant]
     Route: 065
  8. DARVOCET [Concomitant]
     Route: 065
  9. LEVAQUIN [Concomitant]
     Route: 065
  10. MECLIZINE [Concomitant]
     Route: 065
  11. AMIODARONE [Concomitant]
     Route: 065
  12. ISOSORBIDE MONONITRATE [Concomitant]
     Route: 065
  13. FUROSEMIDE [Concomitant]
     Route: 065
  14. POTASSIUM (UNSPECIFIED) [Concomitant]
     Route: 065
  15. NITROSTAT [Concomitant]
     Route: 065
  16. ARICEPT [Concomitant]
     Route: 065
  17. IMDUR [Concomitant]
     Route: 065
  18. NAMENDA [Concomitant]
     Route: 065
  19. LISINOPRIL [Concomitant]
     Route: 065
  20. MIRTAZAPINE [Concomitant]
     Route: 065

REACTIONS (16)
  - ARTHRALGIA [None]
  - BENIGN PROSTATIC HYPERPLASIA [None]
  - CEREBROVASCULAR ACCIDENT [None]
  - CHRONIC SINUSITIS [None]
  - CORONARY ARTERY DISEASE [None]
  - COUGH [None]
  - DEATH [None]
  - DEPRESSION [None]
  - DYSPNOEA [None]
  - FALL [None]
  - HIP FRACTURE [None]
  - MENTAL STATUS CHANGES [None]
  - MYALGIA [None]
  - SUPRAVENTRICULAR TACHYCARDIA [None]
  - SYNCOPE [None]
  - TRANSIENT ISCHAEMIC ATTACK [None]
